FAERS Safety Report 7824460-9 (Version None)
Quarter: 2011Q4

REPORT INFORMATION
  Report Type: 
  Country: None (occurrence: None)
  Receive Date: 20111014
  Receipt Date: 20110929
  Transmission Date: 20120403
  Serious: Yes (Death, Hospitalization)
  Sender: FDA-Public Use
  Company Number: LTI2011A00267

PATIENT
  Age: 76 Year
  Sex: Male

DRUGS (1)
  1. ACTOS [Suspect]
     Indication: TYPE 2 DIABETES MELLITUS
     Dosage: 30 MG (30 MG, 1 IN 1 D) ORAL
     Route: 048
     Dates: start: 20050404, end: 20110330

REACTIONS (3)
  - HAEMATURIA [None]
  - METASTATIC CARCINOMA OF THE BLADDER [None]
  - NEUROPATHY PERIPHERAL [None]
